FAERS Safety Report 7569203-1 (Version None)
Quarter: 2011Q2

REPORT INFORMATION
  Report Type: 
  Country: None (occurrence: None)
  Receive Date: 20110623
  Receipt Date: 20110613
  Transmission Date: 20111010
  Serious: Yes (Other)
  Sender: FDA-Public Use
  Company Number: PHEH2007US06797

PATIENT
  Sex: Male

DRUGS (13)
  1. AREDIA [Suspect]
     Dosage: UNK
  2. LUPRON [Concomitant]
  3. DEXAMETHASONE [Concomitant]
  4. PENICILLIN [Concomitant]
  5. TAXOTERE [Concomitant]
     Dosage: UNK, UNK
  6. PERIDEX [Concomitant]
     Dosage: UNK
     Dates: start: 20040101
  7. ZOMETA [Suspect]
     Indication: PROSTATE CANCER
     Dosage: 4 MG, QOD
     Route: 042
     Dates: start: 20040701, end: 20050101
  8. CLINDAMYCIN [Concomitant]
     Dosage: 300 MG, UNK
     Dates: start: 20040101
  9. BUMETANIDE [Concomitant]
  10. PROSCAR [Concomitant]
     Dosage: UNK, UNK
  11. PROTONIX [Concomitant]
  12. ANTIBIOTICS [Concomitant]
     Dosage: UNK
     Route: 042
     Dates: end: 20050421
  13. EMCYT [Concomitant]

REACTIONS (25)
  - EAR PAIN [None]
  - BONE EROSION [None]
  - TOOTHACHE [None]
  - SOFT TISSUE DISORDER [None]
  - OSTEOMYELITIS [None]
  - GINGIVAL SWELLING [None]
  - TOOTH INFECTION [None]
  - DEAFNESS [None]
  - GLAUCOMA [None]
  - DISCOMFORT [None]
  - BONE DISORDER [None]
  - PAIN IN JAW [None]
  - BACTERIAL TEST [None]
  - OSTEONECROSIS OF JAW [None]
  - GENERAL PHYSICAL HEALTH DETERIORATION [None]
  - IMPAIRED HEALING [None]
  - TOOTH DISORDER [None]
  - STOMATITIS [None]
  - PAIN [None]
  - ANXIETY [None]
  - THROMBOSIS [None]
  - TOOTH ABSCESS [None]
  - BACTERIAL DISEASE CARRIER [None]
  - PATHOLOGICAL FRACTURE [None]
  - OSTEOMYELITIS CHRONIC [None]
